FAERS Safety Report 8349370-2 (Version None)
Quarter: 2012Q2

REPORT INFORMATION
  Report Type: 
  Country: None (occurrence: None)
  Receive Date: 20120510
  Receipt Date: 20120409
  Transmission Date: 20120825
  Serious: Yes (Other)
  Sender: FDA-Public Use
  Company Number: US-ELI_LILLY_AND_COMPANY-US201201006503

PATIENT
  Age: 82 Year
  Sex: Female

DRUGS (1)
  1. FORTEO [Suspect]
     Indication: OSTEOPOROSIS
     Dosage: 20 UG, QD
     Route: 065
     Dates: start: 20110525

REACTIONS (5)
  - MEMORY IMPAIRMENT [None]
  - DYSPNOEA [None]
  - CARDIOMEGALY [None]
  - DRUG DOSE OMISSION [None]
  - ARTERIAL OCCLUSIVE DISEASE [None]
